FAERS Safety Report 14383186 (Version 1)
Quarter: 2018Q1

REPORT INFORMATION
  Report Type: Spontaneous
  Country: IT (occurrence: IT)
  Receive Date: 20180115
  Receipt Date: 20180115
  Transmission Date: 20180509
  Serious: Yes (Life-Threatening)
  Sender: FDA-Public Use
  Company Number: IT-CIPLA LTD.-2018IT00453

PATIENT

DRUGS (1)
  1. CARBOPLATIN. [Suspect]
     Active Substance: CARBOPLATIN
     Indication: UTERINE CANCER
     Dosage: 550 MG, CYCLICAL
     Route: 042
     Dates: start: 20171127, end: 20171218

REACTIONS (6)
  - Muscle rigidity [Recovered/Resolved]
  - Hypoxia [Recovered/Resolved]
  - Vasoconstriction [Recovered/Resolved]
  - Idiosyncratic drug reaction [Recovered/Resolved]
  - Presyncope [Recovered/Resolved]
  - Dyspnoea [Recovered/Resolved]

NARRATIVE: CASE EVENT DATE: 20171218
